FAERS Safety Report 26108039 (Version 2)
Quarter: 2025Q4

REPORT INFORMATION
  Report Type: Spontaneous
  Country: JP (occurrence: JP)
  Receive Date: 20251201
  Receipt Date: 20251217
  Transmission Date: 20260119
  Serious: Yes (Other)
  Sender: GILEAD
  Company Number: JP-GILEAD-2025-0738057

PATIENT
  Age: 28 Year
  Sex: Female

DRUGS (2)
  1. VIREAD [Suspect]
     Active Substance: TENOFOVIR DISOPROXIL FUMARATE
     Indication: Viral hepatitis carrier
     Dosage: 300 MG/DAY
     Route: 065
  2. VIREAD [Suspect]
     Active Substance: TENOFOVIR DISOPROXIL FUMARATE
     Indication: Hepatitis B

REACTIONS (2)
  - Hepatitis B [Recovering/Resolving]
  - Maternal exposure during pregnancy [Recovered/Resolved]
